FAERS Safety Report 25208797 (Version 1)
Quarter: 2025Q2

REPORT INFORMATION
  Report Type: Spontaneous
  Country: US (occurrence: US)
  Receive Date: 20250417
  Receipt Date: 20250417
  Transmission Date: 20250716
  Serious: Yes (Other)
  Sender: BRISTOL MYERS SQUIBB
  Company Number: US-BRISTOL-MYERS SQUIBB COMPANY-2025-053520

PATIENT
  Age: 56 Year
  Sex: Female

DRUGS (2)
  1. APIXABAN [Suspect]
     Active Substance: APIXABAN
     Indication: Splenic vein thrombosis
  2. APIXABAN [Suspect]
     Active Substance: APIXABAN
     Indication: Portal vein thrombosis

REACTIONS (1)
  - Subcapsular splenic haematoma [Unknown]
